FAERS Safety Report 19579633 (Version 1)
Quarter: 2021Q3

REPORT INFORMATION
  Report Type: Spontaneous
  Country: US (occurrence: US)
  Receive Date: 20210719
  Receipt Date: 20210719
  Transmission Date: 20211014
  Serious: No
  Sender: FDA-Public Use
  Company Number: US-NOVOPROD-779764

PATIENT
  Age: 47 Year
  Sex: Female

DRUGS (3)
  1. NOVOFINE PLUS 4MM (32G) [DEVICE] [Suspect]
     Active Substance: DEVICE
  2. NOVOFINE PLUS 4MM (32G) [DEVICE] [Suspect]
     Active Substance: DEVICE
     Indication: TYPE 2 DIABETES MELLITUS
     Dosage: UNK
  3. OZEMPIC [Suspect]
     Active Substance: SEMAGLUTIDE
     Indication: TYPE 2 DIABETES MELLITUS
     Dosage: UNK
     Route: 058
     Dates: start: 202011, end: 20201209

REACTIONS (2)
  - Drug hypersensitivity [Unknown]
  - Influenza [Unknown]

NARRATIVE: CASE EVENT DATE: 2020
